FAERS Safety Report 23218212 (Version 1)
Quarter: 2023Q4

REPORT INFORMATION
  Report Type: Spontaneous
  Country: US (occurrence: US)
  Receive Date: 20231122
  Receipt Date: 20231122
  Transmission Date: 20240109
  Serious: Yes (Other)
  Sender: FDA-Public Use
  Company Number: US-AMGEN-USASP2023205405

PATIENT
  Age: 31 Year
  Sex: Female

DRUGS (1)
  1. BEVACIZUMAB [Suspect]
     Active Substance: BEVACIZUMAB
     Indication: Exudative retinopathy
     Dosage: 1.25 MILLIGRAM PER 0.05 MILLITRE

REACTIONS (3)
  - Vitreous detachment [Unknown]
  - Drug effective for unapproved indication [Unknown]
  - Off label use [Unknown]
